FAERS Safety Report 9970178 (Version 1)
Quarter: 2014Q1

REPORT INFORMATION
  Report Type: Spontaneous
  Country: CA (occurrence: CA)
  Receive Date: 20140306
  Receipt Date: 20140306
  Transmission Date: 20141002
  Serious: Yes (Hospitalization, Other)
  Sender: FDA-Public Use
  Company Number: CA-ASTELLAS-2014US002116

PATIENT
  Sex: Male

DRUGS (1)
  1. PROGRAF [Suspect]
     Indication: LUNG TRANSPLANT
     Dosage: 18 MG, UID/QD
     Route: 048
     Dates: start: 20130409

REACTIONS (3)
  - Off label use [Unknown]
  - Surgery [Unknown]
  - Failure to thrive [Not Recovered/Not Resolved]
